FAERS Safety Report 8224376-2 (Version None)
Quarter: 2012Q1

REPORT INFORMATION
  Report Type: 
  Country: None (occurrence: None)
  Receive Date: 20120321
  Receipt Date: 20120312
  Transmission Date: 20120608
  Serious: Yes (Hospitalization)
  Sender: FDA-Public Use
  Company Number: ES-VERTEX PHARMACEUTICALS INC.-000000000000000355

PATIENT
  Sex: Male
  Weight: 83 kg

DRUGS (3)
  1. RIBAVIRIN [Concomitant]
     Indication: HEPATITIS C
     Route: 048
     Dates: start: 20111214
  2. TELAPREVIR [Suspect]
     Indication: HEPATITIS C
     Dosage: DOSAGE FORM: TABLET
     Route: 048
     Dates: start: 20111214
  3. PEGINTERFERON ALFA-2A [Concomitant]
     Indication: HEPATITIS C
     Route: 065
     Dates: start: 20111214

REACTIONS (1)
  - CELLULITIS [None]
